FAERS Safety Report 13682563 (Version 2)
Quarter: 2017Q2

REPORT INFORMATION
  Report Type: Spontaneous
  Country: US (occurrence: US)
  Receive Date: 20170623
  Receipt Date: 20170623
  Transmission Date: 20170830
  Serious: No
  Sender: FDA-Public Use
  Company Number: US-MALLINCKRODT-T201601732

PATIENT
  Sex: Female
  Weight: 7 kg

DRUGS (1)
  1. H.P. ACTHAR [Suspect]
     Active Substance: CORTICOTROPIN
     Indication: INFANTILE SPASMS
     Dosage: 0.2 ML TO 0.4 ML, EVERY OTHER DAY
     Route: 030
     Dates: start: 20150923, end: 20151019

REACTIONS (1)
  - Infantile spasms [Not Recovered/Not Resolved]
